FAERS Safety Report 5186452-0 (Version None)
Quarter: 2006Q4

REPORT INFORMATION
  Report Type: 
  Country: None (occurrence: None)
  Receive Date: 20061220
  Receipt Date: 20061130
  Transmission Date: 20070319
  Serious: Yes (Death, Hospitalization)
  Sender: FDA-Public Use
  Company Number: US-AMGEN-US202323

PATIENT
  Sex: Female

DRUGS (40)
  1. PANITUMUMAB [Suspect]
     Indication: COLORECTAL CANCER
     Route: 042
     Dates: start: 20060906, end: 20061101
  2. AVASTIN [Suspect]
     Route: 042
  3. IRINOTECAN HCL [Concomitant]
     Route: 042
  4. FLUOROURACIL [Concomitant]
     Route: 042
  5. FOLINIC ACID [Concomitant]
     Route: 042
  6. LOPRESSOR [Concomitant]
     Route: 048
  7. ZOLOFT [Concomitant]
     Route: 048
  8. ZOLOFT [Concomitant]
     Route: 048
  9. MUCINEX [Concomitant]
     Route: 048
  10. LOVENOX [Concomitant]
     Route: 058
  11. SANDOSTATIN [Concomitant]
     Route: 065
  12. PROVENTIL [Concomitant]
     Route: 065
  13. PREVACID [Concomitant]
     Route: 048
  14. CALCIUM [Concomitant]
     Route: 048
     Dates: start: 20060222
  15. DURATUSS-GP [Concomitant]
     Route: 048
     Dates: start: 20060101
  16. FERROUS SULFATE TAB [Concomitant]
     Route: 048
     Dates: start: 20060101
  17. NIFEREX [Concomitant]
     Route: 048
  18. LASIX [Concomitant]
     Route: 048
     Dates: start: 20060101
  19. HYZAAR [Concomitant]
     Route: 048
     Dates: start: 20060801
  20. ALLEGRA [Concomitant]
     Route: 048
     Dates: start: 20060806
  21. VITAMIN CAP [Concomitant]
     Route: 048
     Dates: start: 20060801
  22. TYLENOL [Concomitant]
     Route: 048
     Dates: start: 20060801
  23. AMBIEN [Concomitant]
     Route: 048
     Dates: start: 20060801
  24. COMPAZINE [Concomitant]
     Route: 048
     Dates: start: 20060801
  25. TUSSIONEX [Concomitant]
     Dates: start: 20060101
  26. ALOXI [Concomitant]
     Route: 042
  27. DECADRON [Concomitant]
     Route: 042
  28. NEULASTA [Concomitant]
     Route: 042
     Dates: start: 20060101
  29. ARANESP [Concomitant]
     Route: 058
     Dates: start: 20060101
  30. ACTIVASE [Concomitant]
     Route: 058
     Dates: start: 20060906
  31. PREPARATION H [Concomitant]
     Route: 054
     Dates: start: 20060920
  32. K-DUR 10 [Concomitant]
     Route: 048
     Dates: start: 20060101
  33. MAGNESIUM SULFATE [Concomitant]
     Route: 042
     Dates: start: 20060101
  34. POTASSIUM CHLORIDE [Concomitant]
     Route: 042
     Dates: start: 20060101
  35. DARVON [Concomitant]
     Route: 048
     Dates: start: 20060101
  36. IMODIUM [Concomitant]
     Route: 048
  37. LOMOTIL [Concomitant]
     Route: 048
     Dates: start: 20060101
  38. PREVACID [Concomitant]
     Route: 048
     Dates: start: 20061101
  39. VANCOMYCIN [Concomitant]
     Route: 042
     Dates: start: 20061119
  40. VICODIN [Concomitant]
     Route: 048
     Dates: start: 20061124

REACTIONS (14)
  - ALANINE AMINOTRANSFERASE INCREASED [None]
  - ANAEMIA POSTOPERATIVE [None]
  - ATRIAL FIBRILLATION [None]
  - DEHYDRATION [None]
  - DIARRHOEA [None]
  - ENCEPHALOPATHY [None]
  - HEART RATE INCREASED [None]
  - HEART RATE IRREGULAR [None]
  - HYPOTENSION [None]
  - INTESTINAL PERFORATION [None]
  - METABOLIC ACIDOSIS [None]
  - PERITONITIS [None]
  - REFUSAL OF TREATMENT BY RELATIVE [None]
  - VENA CAVA THROMBOSIS [None]
